FAERS Safety Report 8611325-8 (Version None)
Quarter: 2012Q3

REPORT INFORMATION
  Report Type: 
  Country: None (occurrence: None)
  Receive Date: 20120822
  Receipt Date: 20120813
  Transmission Date: 20120928
  Serious: Yes (Life-Threatening, Hospitalization)
  Sender: FDA-Public Use
  Company Number: US-BIOGENIDEC-2012BI022532

PATIENT
  Age: 47 Year
  Sex: Female
  Weight: 61 kg

DRUGS (11)
  1. TYSABRI [Suspect]
     Indication: MULTIPLE SCLEROSIS
     Route: 042
     Dates: start: 20090713, end: 20110705
  2. TYSABRI [Suspect]
     Route: 042
     Dates: start: 20111004
  3. XANAX [Concomitant]
     Indication: ANXIETY
  4. EFFEXOR [Concomitant]
     Indication: DEPRESSION
  5. NEXIUM [Concomitant]
     Indication: ABDOMINAL DISCOMFORT
  6. MECLIZINE [Concomitant]
     Indication: DIZZINESS
  7. BACLOFEN [Concomitant]
     Indication: MUSCLE SPASTICITY
  8. COUMADIN [Concomitant]
  9. AMBIEN [Concomitant]
     Indication: SLEEP DISORDER
  10. OXYCODONE HCL [Concomitant]
     Indication: PAIN
  11. VITAMIN D [Concomitant]

REACTIONS (1)
  - OVERDOSE [None]
